FAERS Safety Report 15602374 (Version 1)
Quarter: 2018Q4

REPORT INFORMATION
  Report Type: Spontaneous
  Country: US (occurrence: US)
  Receive Date: 20181106
  Receipt Date: 20181106
  Transmission Date: 20190205
  Serious: Yes (Hospitalization)
  Sender: FDA-Public Use
  Company Number: None

PATIENT
  Age: 53 Year
  Sex: Female
  Weight: 79.09 kg

DRUGS (11)
  1. ATIVAN [Concomitant]
     Active Substance: LORAZEPAM
  2. PERTUZUMAB. [Concomitant]
     Active Substance: PERTUZUMAB
  3. DEXAMETHASONE. [Concomitant]
     Active Substance: DEXAMETHASONE
  4. CYCLOPHOSPHAMIDE. [Suspect]
     Active Substance: CYCLOPHOSPHAMIDE
     Indication: BREAST CANCER
     Dosage: ?          OTHER FREQUENCY:EVERY 2 WEEKS;?
     Route: 042
     Dates: start: 20181005, end: 20181019
  5. DOXORUBICIN [Suspect]
     Active Substance: DOXORUBICIN
     Indication: BREAST CANCER
     Dosage: ?          OTHER FREQUENCY:EVERY 2 WEEKS;?
     Route: 042
     Dates: start: 20181005, end: 20181019
  6. METOPROLOL SUCCINATE ER [Concomitant]
     Active Substance: METOPROLOL SUCCINATE
  7. PACLITAXEL. [Concomitant]
     Active Substance: PACLITAXEL
  8. TRASTUZUMAB. [Concomitant]
     Active Substance: TRASTUZUMAB
  9. SIMETHICONE (DIMETHICONE) [Concomitant]
     Active Substance: DIMETHICONE
  10. EFFEXOR [Concomitant]
     Active Substance: VENLAFAXINE HYDROCHLORIDE
  11. CLARITIN [Concomitant]
     Active Substance: LORATADINE

REACTIONS (9)
  - Platelet count decreased [None]
  - Abdominal pain [None]
  - Pain [None]
  - Diarrhoea [None]
  - Lymphocyte count decreased [None]
  - Proctalgia [None]
  - Neutrophil count decreased [None]
  - Anaemia [None]
  - Colitis [None]

NARRATIVE: CASE EVENT DATE: 20181026
